FAERS Safety Report 4343067-1 (Version None)
Quarter: 2004Q2

REPORT INFORMATION
  Report Type: 
  Country: None (occurrence: None)
  Receive Date: 20040416
  Receipt Date: 20040405
  Transmission Date: 20050107
  Serious: Yes (Hospitalization, Other)
  Sender: FDA-Public Use
  Company Number: US-JNJFOC-20040401778

PATIENT
  Age: 48 Year
  Sex: Female

DRUGS (2)
  1. DURAGESIC [Suspect]
     Indication: PAIN
     Dosage: 75 UG/HR, 1 IN 72 HOUR, TRANSDERMAL
     Route: 062
     Dates: start: 20030801
  2. NORCO (VICODIN) TABLETS [Concomitant]

REACTIONS (4)
  - ASTHENIA [None]
  - CYANOSIS [None]
  - MUSCLE CRAMP [None]
  - RESPIRATORY RATE DECREASED [None]
